FAERS Safety Report 19567838 (Version 2)
Quarter: 2022Q3

REPORT INFORMATION
  Report Type: Spontaneous
  Country: US (occurrence: US)
  Receive Date: 20210715
  Receipt Date: 20220914
  Transmission Date: 20221026
  Serious: No
  Sender: FDA-Public Use
  Company Number: US-009507513-2106USA004493

PATIENT
  Age: 52 Year
  Sex: Male

DRUGS (8)
  1. NOXAFIL [Suspect]
     Active Substance: POSACONAZOLE
     Indication: Antifungal prophylaxis
     Dosage: 100 MILLIGRAM, TID
     Route: 048
  2. NOXAFIL [Suspect]
     Active Substance: POSACONAZOLE
     Dosage: 300 MILLIGRAM, BID
     Route: 048
  3. NOXAFIL [Suspect]
     Active Substance: POSACONAZOLE
     Indication: Prophylaxis
     Dosage: 300 MILLIGRAM, QD
     Route: 042
  4. TACROLIMUS [Concomitant]
     Active Substance: TACROLIMUS
     Indication: Prophylaxis against graft versus host disease
     Dosage: UNK
  5. TACROLIMUS [Concomitant]
     Active Substance: TACROLIMUS
     Dosage: 1 MILLIGRAM, QAM
     Route: 048
  6. TACROLIMUS [Concomitant]
     Active Substance: TACROLIMUS
     Dosage: 0.5 MILLIGRAM, QPM
     Route: 048
  7. TACROLIMUS [Concomitant]
     Active Substance: TACROLIMUS
     Dosage: 1 MILLIGRAM, BID
     Route: 048
  8. CYCLOPHOSPHAMIDE [Concomitant]
     Active Substance: CYCLOPHOSPHAMIDE
     Indication: Prophylaxis against graft versus host disease

REACTIONS (1)
  - Drug level below therapeutic [Unknown]
